FAERS Safety Report 8283267-1 (Version None)
Quarter: 2012Q2

REPORT INFORMATION
  Report Type: 
  Country: None (occurrence: None)
  Receive Date: 20120413
  Receipt Date: 20120404
  Transmission Date: 20120825
  Serious: Yes (Life-Threatening, Hospitalization, Other)
  Sender: FDA-Public Use
  Company Number: FR-TEVA-332255ISR

PATIENT
  Sex: Male

DRUGS (1)
  1. COPAXONE [Suspect]
     Dosage: 20 MILLIGRAM;
     Route: 058

REACTIONS (7)
  - FALL [None]
  - MENINGITIS [None]
  - OESOPHAGEAL CARCINOMA [None]
  - MEMORY IMPAIRMENT [None]
  - EAR INFECTION [None]
  - COMA [None]
  - BACK PAIN [None]
